FAERS Safety Report 6428774-9 (Version None)
Quarter: 2009Q4

REPORT INFORMATION
  Report Type: 
  Country: None (occurrence: None)
  Receive Date: 20091105
  Receipt Date: 20091027
  Transmission Date: 20100525
  Serious: Yes (Hospitalization)
  Sender: FDA-Public Use
  Company Number: US-JNJFOC-20091008524

PATIENT
  Sex: Male
  Weight: 31.9 kg

DRUGS (5)
  1. REMICADE [Suspect]
     Route: 042
     Dates: start: 20070808, end: 20090821
  2. REMICADE [Suspect]
     Indication: CROHN'S DISEASE
     Route: 042
     Dates: start: 20070808, end: 20090821
  3. 5-AMINOSALICYLIC ACID [Concomitant]
     Route: 048
  4. PREDNISONE [Concomitant]
  5. METRONIDAZOLE [Concomitant]

REACTIONS (1)
  - ASTHMA [None]
